FAERS Safety Report 15516751 (Version 1)
Quarter: 2018Q4

REPORT INFORMATION
  Report Type: Spontaneous
  Country: PT (occurrence: PT)
  Receive Date: 20181017
  Receipt Date: 20181017
  Transmission Date: 20190205
  Serious: Yes (Hospitalization)
  Sender: FDA-Public Use
  Company Number: PT-MYLANLABS-2018M1075657

PATIENT
  Age: 55 Year
  Sex: Male

DRUGS (6)
  1. PERINDOPRIL [Concomitant]
     Active Substance: PERINDOPRIL
     Indication: SCHIZOPHRENIA
     Dosage: 8 MG, QD
     Route: 065
  2. RISPERIDONE. [Concomitant]
     Active Substance: RISPERIDONE
     Indication: SCHIZOPHRENIA
     Dosage: 20 MG, QD
     Route: 065
  3. MODAFINIL. [Suspect]
     Active Substance: MODAFINIL
     Indication: SCHIZOPHRENIA
     Dosage: 100 MG, UNK
     Route: 065
  4. INDAPAMIDE. [Concomitant]
     Active Substance: INDAPAMIDE
     Indication: SCHIZOPHRENIA
     Dosage: 1.5 MG, QD
     Route: 065
  5. SERTRALINE [Concomitant]
     Active Substance: SERTRALINE HYDROCHLORIDE
     Indication: SCHIZOPHRENIA
     Dosage: 50 MG, QD
     Route: 065
  6. SALICYLIC ACID. [Concomitant]
     Active Substance: SALICYLIC ACID
     Indication: SCHIZOPHRENIA
     Dosage: 100 MG, QD
     Route: 065

REACTIONS (4)
  - Delusional disorder, persecutory type [Recovered/Resolved]
  - Product use in unapproved indication [Recovered/Resolved]
  - Condition aggravated [Recovered/Resolved]
  - Feeling abnormal [Recovered/Resolved]
